FAERS Safety Report 20512087 (Version 97)
Quarter: 2025Q2

REPORT INFORMATION
  Report Type: Report from Study
  Country: CO (occurrence: CO)
  Receive Date: 20220224
  Receipt Date: 20250402
  Transmission Date: 20250717
  Serious: Yes (Hospitalization, Other)
  Sender: TAKEDA
  Company Number: CO-TAKEDA-CO202019286

PATIENT
  Age: 4 Year
  Sex: Male
  Weight: 21 kg

DRUGS (14)
  1. IDURSULFASE [Suspect]
     Active Substance: IDURSULFASE
     Indication: Mucopolysaccharidosis II
     Dosage: 12 MILLIGRAM, Q3WEEKS
     Dates: start: 20181209
  2. IDURSULFASE [Suspect]
     Active Substance: IDURSULFASE
     Dosage: 12 MILLIGRAM, Q3WEEKS
     Dates: start: 20181219
  3. IDURSULFASE [Suspect]
     Active Substance: IDURSULFASE
  4. IDURSULFASE [Suspect]
     Active Substance: IDURSULFASE
     Dosage: 12 MILLIGRAM, 1/WEEK
     Dates: start: 20240314
  5. IDURSULFASE [Suspect]
     Active Substance: IDURSULFASE
     Dosage: 12 MILLIGRAM, 1/WEEK
     Dates: start: 20240503
  6. IDURSULFASE [Suspect]
     Active Substance: IDURSULFASE
  7. IDURSULFASE [Suspect]
     Active Substance: IDURSULFASE
     Dosage: 12 MILLIGRAM, 1/WEEK
  8. IDURSULFASE [Suspect]
     Active Substance: IDURSULFASE
     Dosage: 15 MILLIGRAM, 1/WEEK
  9. IDURSULFASE [Suspect]
     Active Substance: IDURSULFASE
  10. IDURSULFASE [Suspect]
     Active Substance: IDURSULFASE
     Dosage: UNK UNK, 1/WEEK
  11. IDURSULFASE [Suspect]
     Active Substance: IDURSULFASE
  12. IDURSULFASE [Suspect]
     Active Substance: IDURSULFASE
     Dosage: 12 MILLIGRAM, 1/WEEK
  13. ACETAMINOPHEN [Concomitant]
     Active Substance: ACETAMINOPHEN
     Indication: Premedication
  14. LORATADINE [Concomitant]
     Active Substance: LORATADINE
     Indication: Premedication

REACTIONS (74)
  - Device dislocation [Unknown]
  - Gastrostomy failure [Unknown]
  - Respiratory failure [Recovering/Resolving]
  - Cardio-respiratory arrest [Unknown]
  - Respiratory distress [Not Recovered/Not Resolved]
  - Anaphylactic reaction [Unknown]
  - Influenza [Not Recovered/Not Resolved]
  - Brain contusion [Unknown]
  - Self-destructive behaviour [Not Recovered/Not Resolved]
  - Pneumonia [Recovering/Resolving]
  - Incorrect drug administration rate [Recovering/Resolving]
  - Inappropriate schedule of product administration [Unknown]
  - Incorrect dose administered [Unknown]
  - Product prescribing error [Unknown]
  - Mouth injury [Recovered/Resolved]
  - Malaise [Unknown]
  - Nasal septum deviation [Unknown]
  - Discouragement [Recovered/Resolved]
  - Infusion site extravasation [Recovered/Resolved]
  - Product dispensing issue [Unknown]
  - Rhinorrhoea [Not Recovered/Not Resolved]
  - Somnolence [Recovered/Resolved]
  - Pallor [Recovered/Resolved]
  - Tonsillitis bacterial [Unknown]
  - Hypoperfusion [Unknown]
  - Furuncle [Recovered/Resolved]
  - Treatment noncompliance [Unknown]
  - Discomfort [Unknown]
  - Heart rate abnormal [Unknown]
  - Oxygen saturation abnormal [Unknown]
  - Respiration abnormal [Unknown]
  - Pharyngeal inflammation [Unknown]
  - Product availability issue [Unknown]
  - Product distribution issue [Unknown]
  - Product use issue [Unknown]
  - Insurance issue [Unknown]
  - Dyspnoea [Not Recovered/Not Resolved]
  - Cough [Not Recovered/Not Resolved]
  - Pruritus [Unknown]
  - Oxygen saturation decreased [Recovered/Resolved]
  - Nasal congestion [Not Recovered/Not Resolved]
  - Influenza like illness [Not Recovered/Not Resolved]
  - Weight increased [Unknown]
  - Body height increased [Unknown]
  - Puncture site reaction [Recovered/Resolved]
  - Asthenia [Not Recovered/Not Resolved]
  - Nasal dryness [Not Recovered/Not Resolved]
  - Sneezing [Not Recovered/Not Resolved]
  - Poor venous access [Unknown]
  - Puncture site discharge [Recovered/Resolved]
  - Dry skin [Unknown]
  - Dehydration [Unknown]
  - Muscle discomfort [Unknown]
  - Puncture site oedema [Recovered/Resolved]
  - Puncture site erythema [Recovered/Resolved]
  - Gastroenteritis [Not Recovered/Not Resolved]
  - Aggression [Not Recovered/Not Resolved]
  - Insomnia [Not Recovered/Not Resolved]
  - Amnesia [Not Recovered/Not Resolved]
  - Eating disorder [Not Recovered/Not Resolved]
  - Gait disturbance [Not Recovered/Not Resolved]
  - Disorientation [Not Recovered/Not Resolved]
  - Fall [Unknown]
  - Ligament sprain [Unknown]
  - Sensory loss [Not Recovered/Not Resolved]
  - Oedema [Unknown]
  - Product dose omission issue [Unknown]
  - Chills [Recovered/Resolved]
  - Vomiting [Recovered/Resolved]
  - Abdominal pain [Recovered/Resolved]
  - Cyanosis [Recovered/Resolved]
  - Rash [Recovered/Resolved]
  - Erythema [Unknown]
  - Pyrexia [Unknown]

NARRATIVE: CASE EVENT DATE: 20200608
